FAERS Safety Report 11830195 (Version 1)
Quarter: 2015Q4

REPORT INFORMATION
  Report Type: Spontaneous
  Country: GR (occurrence: GR)
  Receive Date: 20151214
  Receipt Date: 20151214
  Transmission Date: 20160305
  Serious: Yes (Hospitalization, Other)
  Sender: FDA-Public Use
  Company Number: GR-009507513-1502GRC008992

PATIENT
  Sex: Female
  Weight: 100 kg

DRUGS (2)
  1. JANUMET [Suspect]
     Active Substance: METFORMIN HYDROCHLORIDE\SITAGLIPTIN PHOSPHATE
     Indication: TYPE 2 DIABETES MELLITUS
     Dosage: 2 TABLETS DAILY
     Route: 048
     Dates: start: 200502
  2. DIAMICRON [Concomitant]
     Active Substance: GLICLAZIDE
     Dosage: 1 DAILY
     Route: 048

REACTIONS (1)
  - Hepatobiliary disease [Unknown]
